FAERS Safety Report 6312076-5 (Version None)
Quarter: 2009Q3

REPORT INFORMATION
  Report Type: 
  Country: None (occurrence: None)
  Receive Date: 20090813
  Receipt Date: 20090813
  Transmission Date: 20100115
  Serious: Yes (Hospitalization)
  Sender: FDA-Public Use
  Company Number: None

PATIENT
  Sex: Female
  Weight: 69.4 kg

DRUGS (6)
  1. DAUNORUBICIN HCL [Suspect]
     Dosage: 135 MG
     Dates: end: 20090724
  2. METHOTREXATE [Suspect]
     Dosage: 15 MG
     Dates: end: 20090717
  3. ONCASPAR [Suspect]
     Dosage: 4425 UNIT
     Dates: end: 20090713
  4. PREDNISONE TAB [Suspect]
     Dosage: 2625 MG
  5. VINCRISTINE SULFATE [Suspect]
     Dosage: 6 MG
     Dates: end: 20090724
  6. CYTARABINE [Suspect]
     Dosage: 70 MG
     Dates: end: 20090710

REACTIONS (7)
  - ASCITES [None]
  - CONSTIPATION [None]
  - HYPOTENSION [None]
  - PALLOR [None]
  - PANCREATITIS NECROTISING [None]
  - PLEURAL EFFUSION [None]
  - PNEUMOMEDIASTINUM [None]
